FAERS Safety Report 19516970 (Version 2)
Quarter: 2021Q3

REPORT INFORMATION
  Report Type: Report from Study
  Country: None (occurrence: US)
  Receive Date: 20210711
  Receipt Date: 20210724
  Transmission Date: 20211014
  Serious: Yes (Other)
  Sender: FDA-Public Use
  Company Number: US-ABBVIE-21K-163-3981423-00

PATIENT
  Age: 59 Year
  Sex: Female
  Weight: 89.89 kg

DRUGS (10)
  1. ADVIL [Concomitant]
     Active Substance: IBUPROFEN
     Indication: ASTHMA
     Route: 055
  2. PFIZER?BIONTECH COVID?19 VACCINE [Concomitant]
     Active Substance: TOZINAMERAN
     Dosage: PFIZER
     Route: 030
     Dates: start: 20210129, end: 20210129
  3. VITAMIN D [Concomitant]
     Active Substance: VITAMIN D NOS
     Indication: SUPPLEMENTATION THERAPY
     Route: 065
  4. XOLAIR [Concomitant]
     Active Substance: OMALIZUMAB
     Indication: ASTHMA
     Route: 065
  5. RINVOQ [Suspect]
     Active Substance: UPADACITINIB
     Indication: RHEUMATOID ARTHRITIS
     Route: 048
     Dates: start: 202010
  6. LORATADINE. [Concomitant]
     Active Substance: LORATADINE
     Indication: ASTHMA
     Route: 060
  7. CELEBREX [Concomitant]
     Active Substance: CELECOXIB
     Indication: RHEUMATOID ARTHRITIS
     Route: 065
     Dates: end: 202106
  8. LISINOPRIL. [Concomitant]
     Active Substance: LISINOPRIL
     Indication: HYPERTENSION
     Route: 065
  9. PFIZER?BIONTECH COVID?19 VACCINE [Concomitant]
     Active Substance: TOZINAMERAN
     Indication: COVID-19 IMMUNISATION
     Dosage: PFIZER
     Route: 030
     Dates: start: 20210108, end: 20210108
  10. SINGULAIR [Concomitant]
     Active Substance: MONTELUKAST SODIUM
     Indication: ASTHMA
     Route: 065

REACTIONS (6)
  - Tendon rupture [Recovering/Resolving]
  - Joint stiffness [Recovered/Resolved]
  - Ligament sprain [Unknown]
  - Musculoskeletal stiffness [Recovered/Resolved]
  - Joint dislocation [Recovering/Resolving]
  - Arthropathy [Recovering/Resolving]

NARRATIVE: CASE EVENT DATE: 202102
